FAERS Safety Report 10437162 (Version 1)
Quarter: 2014Q3

REPORT INFORMATION
  Report Type: Spontaneous
  Country: US (occurrence: US)
  Receive Date: 20140908
  Receipt Date: 20140908
  Transmission Date: 20150326
  Serious: No
  Sender: FDA-Public Use
  Company Number: US-BRISTOL-MYERS SQUIBB COMPANY-20340220

PATIENT
  Age: 36 Year
  Sex: Female
  Weight: 75.73 kg

DRUGS (3)
  1. ABILIFY [Suspect]
     Active Substance: ARIPIPRAZOLE
  2. PAXIL [Concomitant]
     Active Substance: PAROXETINE HYDROCHLORIDE
  3. VITAMIN B [Concomitant]
     Active Substance: VITAMIN B

REACTIONS (2)
  - Weight increased [Unknown]
  - Fatigue [Unknown]
